FAERS Safety Report 20098533 (Version 5)
Quarter: 2023Q1

REPORT INFORMATION
  Report Type: Spontaneous
  Country: CZ (occurrence: CZ)
  Receive Date: 20211122
  Receipt Date: 20230313
  Transmission Date: 20230417
  Serious: Yes (Other)
  Sender: FDA-Public Use
  Company Number: CZ-MYLANLABS-2021M1062162

PATIENT
  Age: 49 Year
  Sex: Female

DRUGS (22)
  1. LETROZOLE [Suspect]
     Active Substance: LETROZOLE
     Indication: Breast cancer metastatic
     Dosage: 2.5 MILLIGRAM, QD (CONTINUOUSLY WITHOUT PAUSE)
     Route: 065
     Dates: start: 201907
  2. LETROZOLE [Suspect]
     Active Substance: LETROZOLE
     Indication: Breast cancer
     Dosage: 2.5 MG, QD, 2.5 MG QD (THERAPY WITH RIBOCICLIB)
     Route: 065
     Dates: start: 201907
  3. LETROZOLE [Suspect]
     Active Substance: LETROZOLE
     Indication: Invasive breast carcinoma
     Dosage: 2.5 MILLIGRAM, QD
     Route: 065
     Dates: start: 201908
  4. LETROZOLE [Suspect]
     Active Substance: LETROZOLE
     Indication: Hormone receptor positive HER2 negative breast cancer
  5. LETROZOLE [Suspect]
     Active Substance: LETROZOLE
     Indication: Menopause
  6. LETROZOLE [Suspect]
     Active Substance: LETROZOLE
     Indication: Breast cancer stage IV
  7. RIBOCICLIB [Suspect]
     Active Substance: RIBOCICLIB
     Indication: Breast cancer metastatic
     Dosage: 600 MILLIGRAM, QD, 600 MILLIGRAM DAILY; 600 MG DA
     Route: 065
     Dates: start: 201907
  8. RIBOCICLIB [Suspect]
     Active Substance: RIBOCICLIB
     Indication: Breast cancer
     Dosage: UNK, REGIME 3/1
     Route: 065
  9. RIBOCICLIB [Suspect]
     Active Substance: RIBOCICLIB
     Indication: Hormone receptor positive HER2 negative breast cancer
     Dosage: 600 MG, QD, 600 MG DAILY IN THE REGIMEN 3/1
     Route: 065
     Dates: start: 201907
  10. RIBOCICLIB [Suspect]
     Active Substance: RIBOCICLIB
     Indication: Invasive breast carcinoma
     Dosage: 600 MILLIGRAM, QD
     Route: 065
     Dates: start: 201908
  11. RIBOCICLIB [Suspect]
     Active Substance: RIBOCICLIB
     Indication: Menopause
  12. RIBOCICLIB [Suspect]
     Active Substance: RIBOCICLIB
     Indication: Breast cancer stage IV
  13. ZOLADEX [Suspect]
     Active Substance: GOSERELIN ACETATE
     Indication: Breast cancer metastatic
     Dosage: 3.6 MILLIGRAM, Q28D, 3.6 MG (ONCE EVERY 28 DAYS)
     Route: 058
     Dates: start: 201907, end: 202202
  14. ZOLADEX [Suspect]
     Active Substance: GOSERELIN ACETATE
     Indication: Breast cancer
  15. ZOLADEX [Suspect]
     Active Substance: GOSERELIN ACETATE
     Indication: Invasive breast carcinoma
  16. ZOLADEX [Suspect]
     Active Substance: GOSERELIN ACETATE
     Indication: Hormone receptor positive HER2 negative breast cancer
  17. ZOLADEX [Suspect]
     Active Substance: GOSERELIN ACETATE
     Indication: Therapeutic ovarian suppression
  18. ZOLADEX [Suspect]
     Active Substance: GOSERELIN ACETATE
     Indication: Breast cancer stage IV
  19. ZOLADEX [Suspect]
     Active Substance: GOSERELIN ACETATE
     Indication: Menopause
  20. ACECLOFENAC [Suspect]
     Active Substance: ACECLOFENAC
     Indication: Spinal pain
     Dosage: UNK
     Route: 065
  21. ACECLOFENAC [Suspect]
     Active Substance: ACECLOFENAC
     Indication: Pain
     Dosage: UNK, PRN, (AS NEEDED)
     Route: 065
  22. METAMIZOL [Suspect]
     Active Substance: METAMIZOLE SODIUM
     Indication: Spinal pain
     Dosage: UNK UNK, PRN, (AS NEEDED)
     Route: 065

REACTIONS (3)
  - Neutropenia [Recovered/Resolved]
  - Leukopenia [Recovered/Resolved]
  - Therapy partial responder [Unknown]

NARRATIVE: CASE EVENT DATE: 20210401
